FAERS Safety Report 9480809 (Version 1)
Quarter: 2013Q3

REPORT INFORMATION
  Report Type: Spontaneous
  Country: US (occurrence: US)
  Receive Date: 20130828
  Receipt Date: 20130828
  Transmission Date: 20140515
  Serious: Yes (Other)
  Sender: FDA-Public Use
  Company Number: US-AMGEN-KDL127117

PATIENT
  Age: 12 Year
  Sex: Female

DRUGS (2)
  1. ENBREL [Suspect]
     Indication: PSORIATIC ARTHROPATHY
     Dosage: 25 MG, QWK
     Route: 058
     Dates: start: 20040727
  2. METHOTREXATE [Concomitant]
     Dosage: 2.5 MG, 2 TIMES/WK

REACTIONS (2)
  - Crohn^s disease [Unknown]
  - Clostridium difficile colitis [Unknown]
